FAERS Safety Report 5270750-6 (Version None)
Quarter: 2007Q1

REPORT INFORMATION
  Report Type: 
  Country: None (occurrence: None)
  Receive Date: 20070315
  Receipt Date: 20070302
  Transmission Date: 20070707
  Serious: Yes (Hospitalization)
  Sender: FDA-Public Use
  Company Number: MEDI-0005220

PATIENT
  Age: 4 Month
  Sex: Male
  Weight: 5.075 kg

DRUGS (1)
  1. SYNAGIS [Suspect]
     Indication: ANTIVIRAL PROPHYLAXIS
     Dosage: 0.71 ML, INTRAMUSCULAR
     Route: 030
     Dates: start: 20061016, end: 20061016

REACTIONS (4)
  - ARTHRITIS [None]
  - EFFUSION [None]
  - GASTROENTERITIS [None]
  - OSTEOMYELITIS [None]
